FAERS Safety Report 6165326-2 (Version None)
Quarter: 2009Q2

REPORT INFORMATION
  Report Type: 
  Country: None (occurrence: None)
  Receive Date: 20090423
  Receipt Date: 20090414
  Transmission Date: 20091009
  Serious: Yes (Hospitalization)
  Sender: FDA-Public Use
  Company Number: CH-ABBOTT-09P-151-0568250-00

PATIENT
  Age: 80 Year
  Sex: Female

DRUGS (11)
  1. KLACID [Suspect]
     Indication: BRONCHOPNEUMONIA
  2. CEFTRIAXONE SODIUM [Suspect]
     Indication: BRONCHOPNEUMONIA
     Route: 042
     Dates: start: 20090303, end: 20090309
  3. CEFUROXIME AXETIL [Suspect]
     Indication: BRONCHOPNEUMONIA
     Route: 048
     Dates: start: 20090309, end: 20090312
  4. ALENDRONIC ACID [Concomitant]
     Indication: DRUG USE FOR UNKNOWN INDICATION
     Route: 048
  5. CALCIUM CARBONATE W/COLECALCIFEROL [Concomitant]
     Indication: DRUG USE FOR UNKNOWN INDICATION
     Route: 048
  6. DIGOXIN [Concomitant]
     Indication: DRUG USE FOR UNKNOWN INDICATION
     Route: 048
     Dates: start: 20090224
  7. ESOMEPRAZOLE MAGNESIUM [Concomitant]
     Indication: GASTRIC ULCER
     Route: 048
     Dates: start: 20070101
  8. ACETAMINOPHEN [Concomitant]
     Indication: DRUG USE FOR UNKNOWN INDICATION
     Route: 048
  9. SUCRALFATE [Concomitant]
     Indication: DRUG USE FOR UNKNOWN INDICATION
     Route: 048
     Dates: start: 20090311, end: 20090314
  10. ACENOCOUMAROL [Concomitant]
     Indication: ATRIAL FIBRILLATION
     Route: 048
  11. ACENOCOUMAROL [Concomitant]
     Indication: ATRIAL FLUTTER

REACTIONS (2)
  - PSEUDOMEMBRANOUS COLITIS [None]
  - SEPTIC SHOCK [None]
